FAERS Safety Report 9438135 (Version 1)
Quarter: 2013Q3

REPORT INFORMATION
  Report Type: Spontaneous
  Country: US (occurrence: US)
  Receive Date: 20130802
  Receipt Date: 20130802
  Transmission Date: 20140515
  Serious: No
  Sender: FDA-Public Use
  Company Number: US-009507513-1307USA014903

PATIENT
  Age: 50 Year
  Sex: Male
  Weight: 102.49 kg

DRUGS (19)
  1. VICTRELIS [Suspect]
     Dosage: TAKE 800MG (FOUR 200MG CAPSULE) BY MOUTH THREE TIME A DAY EVERY 7-9 HOURS
     Route: 048
  2. PEGASYS [Suspect]
  3. RIBAPAK [Suspect]
     Dosage: 1200/DAY
  4. NIFEDIPINE [Concomitant]
  5. PRINIVIL [Concomitant]
  6. LYRICA [Concomitant]
  7. GLIPIZIDE [Concomitant]
  8. GABAPENTIN [Concomitant]
  9. TRAZODONE HYDROCHLORIDE [Concomitant]
  10. DIVALPROEX SODIUM [Concomitant]
  11. BUSPIRONE HYDROCHLORIDE [Concomitant]
  12. QUETIAPINE FUMARATE [Concomitant]
  13. METHOCARBAMOL [Concomitant]
  14. DICLOFENAC [Concomitant]
  15. OXYCODONE [Concomitant]
  16. MORPHINE SULFATE [Concomitant]
  17. ONDANSETRON [Concomitant]
  18. MELATONIN [Concomitant]
  19. METFORMIN [Concomitant]

REACTIONS (5)
  - Anger [Unknown]
  - Depression [Unknown]
  - Irritability [Unknown]
  - Nausea [Unknown]
  - Dysgeusia [Unknown]
